FAERS Safety Report 20768994 (Version 1)
Quarter: 2022Q2

REPORT INFORMATION
  Report Type: Spontaneous
  Country: US (occurrence: None)
  Receive Date: 20220428
  Receipt Date: 20220428
  Transmission Date: 20220720
  Serious: Yes (Death)
  Sender: FDA-Public Use
  Company Number: None

PATIENT
  Age: 76 Year
  Sex: Male

DRUGS (1)
  1. REVLIMID [Suspect]
     Active Substance: LENALIDOMIDE
     Indication: Plasma cell myeloma
     Dosage: FREQUENCY : DAILY;?
     Route: 048
     Dates: start: 20170908, end: 20220306

REACTIONS (13)
  - Lumbar spinal stenosis [None]
  - Oliguria [None]
  - Renal tubular necrosis [None]
  - Renal impairment [None]
  - Malnutrition [None]
  - Failure to thrive [None]
  - Cardiac arrest [None]
  - Ventricular fibrillation [None]
  - Acute respiratory failure [None]
  - Pneumonia [None]
  - Hypervolaemia [None]
  - Haemodialysis [None]
  - Myelopathy [None]

NARRATIVE: CASE EVENT DATE: 20220323
